FAERS Safety Report 21741654 (Version 1)
Quarter: 2022Q4

REPORT INFORMATION
  Report Type: Spontaneous
  Country: US (occurrence: None)
  Receive Date: 20221216
  Receipt Date: 20221216
  Transmission Date: 20230113
  Serious: Yes (Other)
  Sender: FDA-Public Use
  Company Number: None

PATIENT
  Age: 46 Year
  Sex: Female
  Weight: 91.35 kg

DRUGS (1)
  1. MOUNJARO [Suspect]
     Active Substance: TIRZEPATIDE
     Indication: Diabetes mellitus
     Dosage: OTHER QUANTITY : 7.5 INJECTION(S);?OTHER FREQUENCY : ONCE WEEKLY;?OTHER ROUTE : INJECTION;?
     Route: 050
     Dates: start: 20221120

REACTIONS (1)
  - Product supply issue [None]

NARRATIVE: CASE EVENT DATE: 20221216
